FAERS Safety Report 5454040-4 (Version None)
Quarter: 2007Q3

REPORT INFORMATION
  Report Type: 
  Country: None (occurrence: None)
  Receive Date: 20070917
  Receipt Date: 20070228
  Transmission Date: 20080115
  Serious: Yes (Hospitalization, Other)
  Sender: FDA-Public Use
  Company Number: US-ASTRAZENECA-2006UW07041

PATIENT
  Sex: Female
  Weight: 97.3 kg

DRUGS (5)
  1. SEROQUEL [Suspect]
     Indication: PSYCHOTIC DISORDER
     Route: 048
     Dates: start: 20040505, end: 20041022
  2. RISPERDAL [Suspect]
     Dates: start: 20020101, end: 20060101
  3. ABILIFY [Concomitant]
     Dates: start: 20061001
  4. THORAZINE [Concomitant]
     Dates: start: 20061101
  5. ZYPREXA [Concomitant]
     Dates: start: 20020301, end: 20021201

REACTIONS (3)
  - DIABETES MELLITUS [None]
  - TARDIVE DYSKINESIA [None]
  - WEIGHT INCREASED [None]
